FAERS Safety Report 7357899-9 (Version None)
Quarter: 2011Q1

REPORT INFORMATION
  Report Type: 
  Country: None (occurrence: None)
  Receive Date: 20110309
  Receipt Date: 20110224
  Transmission Date: 20110831
  Serious: Yes (Hospitalization, Other)
  Sender: FDA-Public Use
  Company Number: DSJ-2010-13744

PATIENT
  Age: 8 Decade
  Sex: Male

DRUGS (6)
  1. SITAGLIPTIN (SITAGLIPTIN) (SITAGLIPTIN) [Concomitant]
  2. PASSIFLORA INCARNATA/CRATAEGUS OXYCANTHA/SALIX ALBA [Concomitant]
  3. BENICAR  (OLMESARTAN MEDOXOMIL) (TABLET) (OLMESARTAN MEDOXOMIL) [Suspect]
     Indication: HYPERTENSION
     Dosage: 20 MG (20 MG, 1 IN 1 D), PER ORAL
     Route: 048
     Dates: start: 20060101
  4. METOPROLOL SUCCINATE [Concomitant]
  5. ROSUVASTATIN [Concomitant]
  6. VITAMIN B1 (THIAMINE HYDROCHLORIDE)(THIAMINE HYDROCHLORIDE) [Concomitant]

REACTIONS (4)
  - VOMITING [None]
  - NASOPHARYNGITIS [None]
  - PRURITUS [None]
  - ABDOMINAL PAIN [None]
